FAERS Safety Report 4280580-X (Version None)
Quarter: 2004Q1

REPORT INFORMATION
  Report Type: 
  Country: None (occurrence: None)
  Receive Date: 20040127
  Receipt Date: 20040112
  Transmission Date: 20041129
  Serious: Yes (Other)
  Sender: FDA-Public Use
  Company Number: 2004195161GB

PATIENT
  Age: 29 Year
  Sex: Female

DRUGS (7)
  1. METHYLPREDNISOLONE [Suspect]
     Indication: TRANSPLANT REJECTION
  2. DELTA-CORTEF [Suspect]
     Dosage: 10 MG,
  3. ANTITHYMOCYTE IMMUNOGLOBULIN (ANTITHYMOCYTE IMMUNOGLOBULIN) [Concomitant]
  4. MYCOPHENOLIC ACID (MYOCPHENOLIC ACID) [Concomitant]
  5. NEORAL (CILCLOSPORIN) [Concomitant]
  6. LABETALOL HCL [Concomitant]
  7. AMLODIPINE [Concomitant]

REACTIONS (5)
  - INTRA-UTERINE DEATH [None]
  - KIDNEY TRANSPLANT REJECTION [None]
  - MATERNAL DRUGS AFFECTING FOETUS [None]
  - PREGNANCY [None]
  - URINARY TRACT INFECTION [None]
